FAERS Safety Report 16205262 (Version 1)
Quarter: 2019Q2

REPORT INFORMATION
  Report Type: Spontaneous
  Country: SE (occurrence: SE)
  Receive Date: 20190416
  Receipt Date: 20190416
  Transmission Date: 20190711
  Serious: Yes (Other)
  Sender: FDA-Public Use
  Company Number: SE-009507513-1904SWE006852

PATIENT
  Age: 38 Year
  Sex: Male

DRUGS (2)
  1. MIRTAZAPINE. [Suspect]
     Active Substance: MIRTAZAPINE
     Indication: DEPRESSION
     Dosage: 30 MILLIGRAM, QD
     Route: 065
  2. BRINTELLIX [Suspect]
     Active Substance: VORTIOXETINE HYDROBROMIDE
     Indication: DEPRESSION
     Dosage: 20 MILLIGRAM, QD
     Route: 048
     Dates: start: 201808, end: 20190227

REACTIONS (10)
  - Heart rate increased [Unknown]
  - Serotonin syndrome [Unknown]
  - Diarrhoea [Recovering/Resolving]
  - Tension [Recovering/Resolving]
  - Cold sweat [Unknown]
  - Paraesthesia [Unknown]
  - Tremor [Unknown]
  - Panic attack [Unknown]
  - Palpitations [Unknown]
  - Hypoaesthesia [Recovering/Resolving]
